FAERS Safety Report 12266696 (Version 1)
Quarter: 2016Q2

REPORT INFORMATION
  Report Type: Spontaneous
  Country: US (occurrence: None)
  Receive Date: 20160413
  Receipt Date: 20160413
  Transmission Date: 20160815
  Serious: No
  Sender: FDA-Public Use
  Company Number: None

PATIENT
  Age: 92 Year
  Sex: Male
  Weight: 81.65 kg

DRUGS (9)
  1. PACEMAKER [Concomitant]
  2. MELATONIN [Concomitant]
     Active Substance: MELATONIN
  3. WARFARIN [Concomitant]
     Active Substance: WARFARIN
  4. ULTRAM [Suspect]
     Active Substance: TRAMADOL HYDROCHLORIDE
     Indication: DISCOMFORT
     Dosage: 50MG 1 OR 2 EVERY 6 HRS. WE USED 1 EVERY 6 HRS. WE USED ONLY 3 IN 24 HRS. MOUTH?
     Route: 048
     Dates: start: 20160307, end: 20160316
  5. ULTRAM [Suspect]
     Active Substance: TRAMADOL HYDROCHLORIDE
     Indication: SPINAL DISORDER
     Dosage: 50MG 1 OR 2 EVERY 6 HRS. WE USED 1 EVERY 6 HRS. WE USED ONLY 3 IN 24 HRS. MOUTH?
     Route: 048
     Dates: start: 20160307, end: 20160316
  6. SYNTHROID [Concomitant]
     Active Substance: LEVOTHYROXINE SODIUM
  7. VITAMIN B12 [Concomitant]
     Active Substance: CYANOCOBALAMIN
  8. TYLENOL [Concomitant]
     Active Substance: ACETAMINOPHEN
  9. VITAMIN D [Concomitant]
     Active Substance: CHOLECALCIFEROL

REACTIONS (7)
  - Hallucination [None]
  - Memory impairment [None]
  - Confusional state [None]
  - Blood pressure increased [None]
  - Hallucination, visual [None]
  - Crying [None]
  - Bradyphrenia [None]

NARRATIVE: CASE EVENT DATE: 20160316
